FAERS Safety Report 5026992-8 (Version None)
Quarter: 2006Q2

REPORT INFORMATION
  Report Type: 
  Country: None (occurrence: None)
  Receive Date: 20060609
  Receipt Date: 20060503
  Transmission Date: 20061013
  Serious: Yes (Other)
  Sender: FDA-Public Use
  Company Number: 2006060608

PATIENT
  Age: 44 Year
  Sex: Female
  Weight: 53.0709 kg

DRUGS (9)
  1. LYRICA [Suspect]
     Indication: NEURALGIA
     Dosage: 450 MG (150 MG 3 IN 1 D) ORAL
     Route: 048
     Dates: start: 20060301
  2. NEURONTIN [Suspect]
     Indication: NEURALGIA
     Dosage: 1200 MG (400 MG 3 IN 1 D) ORAL
     Route: 048
     Dates: start: 20040501
  3. AMITRIPTYLINE HCL [Concomitant]
  4. ACETAMINOPHEN AND OXYCODONE HCL [Concomitant]
  5. DRUG, UNSPECIFIED (DRUG, UNSPECIFIED) [Concomitant]
  6. STADOL [Concomitant]
  7. RELPAX [Concomitant]
  8. ALL OTHER THERAPEUTIC PRODUCTS (ALL OTHER THERAPEUTIC PRODUCTS) [Concomitant]
  9. VITAMIN B2 (RIBOFLAVIN) [Concomitant]

REACTIONS (12)
  - ARTHRALGIA [None]
  - DRUG DISPENSING ERROR [None]
  - FACE OEDEMA [None]
  - FATIGUE [None]
  - HYPERSOMNIA [None]
  - INCORRECT DOSE ADMINISTERED [None]
  - OEDEMA [None]
  - OEDEMA PERIPHERAL [None]
  - PAIN IN EXTREMITY [None]
  - REFUSAL OF TREATMENT BY PATIENT [None]
  - SENSATION OF HEAVINESS [None]
  - SOMNOLENCE [None]
